FAERS Safety Report 8533481-2 (Version None)
Quarter: 2012Q3

REPORT INFORMATION
  Report Type: 
  Country: None (occurrence: None)
  Receive Date: 20120724
  Receipt Date: 20120716
  Transmission Date: 20120928
  Serious: No
  Sender: FDA-Public Use
  Company Number: US-BAYER-2012-072820

PATIENT

DRUGS (2)
  1. ACETAMINOPHEN [Concomitant]
     Dosage: UNK
  2. ALEVE (CAPLET) [Suspect]
     Indication: PAIN
     Dosage: 2 UNK, UNK

REACTIONS (1)
  - PAIN [None]
